FAERS Safety Report 9845565 (Version 1)
Quarter: 2014Q1

REPORT INFORMATION
  Report Type: Spontaneous
  Country: US (occurrence: US)
  Receive Date: 20140127
  Receipt Date: 20140127
  Transmission Date: 20141002
  Serious: No
  Sender: FDA-Public Use
  Company Number: US-PFIZER INC-2014018720

PATIENT
  Age: 84 Year
  Sex: Female
  Weight: 77.1 kg

DRUGS (4)
  1. ADVIL [Suspect]
     Indication: PAIN
     Dosage: UNK
     Route: 048
     Dates: start: 20140110, end: 20140119
  2. ENALAPRIL [Concomitant]
     Indication: BLOOD PRESSURE
     Dosage: 2.5 MG, DAILY
  3. CENTRUM SILVER [Concomitant]
     Dosage: UNK, DAILY
  4. SUNDOWN NATURAL FISH OIL [Concomitant]
     Dosage: 1000 MG, UNK

REACTIONS (1)
  - Drug ineffective [Unknown]
